FAERS Safety Report 9640019 (Version 1)
Quarter: 2013Q4

REPORT INFORMATION
  Report Type: Spontaneous
  Country: US (occurrence: US)
  Receive Date: 20131023
  Receipt Date: 20131023
  Transmission Date: 20140711
  Serious: Yes (Other)
  Sender: FDA-Public Use
  Company Number: PHEH2013US021903

PATIENT
  Sex: Male

DRUGS (1)
  1. GLEEVEC [Suspect]
     Indication: MALIGNANT MAST CELL NEOPLASM
     Dosage: UNK UKN, UNK

REACTIONS (4)
  - Cell marker increased [Unknown]
  - Fatigue [Unknown]
  - Quality of life decreased [Unknown]
  - Osteoporosis [Unknown]
